FAERS Safety Report 18924678 (Version 2)
Quarter: 2021Q3

REPORT INFORMATION
  Report Type: Spontaneous
  Country: US (occurrence: US)
  Receive Date: 20210222
  Receipt Date: 20210916
  Transmission Date: 20211014
  Serious: Yes (Other)
  Sender: FDA-Public Use
  Company Number: US-PFIZER INC-2021148786

PATIENT
  Age: 66 Year
  Sex: Female

DRUGS (1)
  1. IBRANCE [Suspect]
     Active Substance: PALBOCICLIB
     Dosage: 125 MG
     Dates: start: 20201003

REACTIONS (4)
  - Tachycardia [Unknown]
  - Fatigue [Unknown]
  - Rash [Unknown]
  - COVID-19 [Unknown]

NARRATIVE: CASE EVENT DATE: 20210803
